FAERS Safety Report 21635606 (Version 1)
Quarter: 2022Q4

REPORT INFORMATION
  Report Type: Spontaneous
  Country: JP (occurrence: JP)
  Receive Date: 20221123
  Receipt Date: 20221123
  Transmission Date: 20230112
  Serious: Yes (Other)
  Sender: FDA-Public Use
  Company Number: JP-GSKJP-JP2022JPN140195

PATIENT

DRUGS (1)
  1. BOTOX [Suspect]
     Active Substance: ONABOTULINUMTOXINA
     Indication: Hypertonic bladder
     Dosage: UNK UNK, SINGLE
     Route: 030

REACTIONS (3)
  - Residual urine volume increased [Unknown]
  - Urinary retention [Unknown]
  - Circumstance or information capable of leading to medication error [Unknown]
